FAERS Safety Report 8013677-9 (Version None)
Quarter: 2011Q4

REPORT INFORMATION
  Report Type: 
  Country: None (occurrence: None)
  Receive Date: 20111229
  Receipt Date: 20111219
  Transmission Date: 20120403
  Serious: Yes (Death, Hospitalization)
  Sender: FDA-Public Use
  Company Number: US-PFIZER INC-2011310242

PATIENT
  Age: 44 Year
  Sex: Female

DRUGS (5)
  1. BUTALBITAL AND CAFFEINE AND PARACETAMOL [Suspect]
  2. LITHIUM [Suspect]
  3. OXYCODONE HYDROCHLORIDE [Suspect]
  4. CLONIDINE [Suspect]
  5. ACETAMINOPHEN AND HYDROCODONE BITARTRATE [Suspect]

REACTIONS (1)
  - COMPLETED SUICIDE [None]
